FAERS Safety Report 8981329 (Version 2)
Quarter: 2013Q1

REPORT INFORMATION
  Report Type: Spontaneous
  Country: DK (occurrence: DK)
  Receive Date: 20121221
  Receipt Date: 20130102
  Transmission Date: 20140127
  Serious: Yes (Other)
  Sender: FDA-Public Use
  Company Number: DK-BAYER-2012-131317

PATIENT
  Age: 36 Year
  Sex: Female
  Weight: 74 kg

DRUGS (8)
  1. YASMIN [Suspect]
     Indication: CONTRACEPTION
     Dosage: 1 DF, QD
     Route: 048
     Dates: start: 2009
  2. METFORMIN [Concomitant]
     Indication: TYPE 2 DIABETES MELLITUS
     Dosage: 500 MG, BID
     Dates: start: 2005
  3. SIMVASTATIN [Concomitant]
     Indication: CHOLESTEROSIS
     Dosage: 40 MG, QD
     Dates: start: 2006
  4. SPIRONOLACTONE [Concomitant]
     Indication: HORMONE THERAPY
     Dosage: 100 MG, QD
     Dates: start: 2011
  5. ALBYL-ENTEROSOLUBILE [Concomitant]
     Indication: THROMBOSIS PROPHYLAXIS
     Dosage: 75 MG, QD
     Dates: start: 2006
  6. PARACETAMOL [Concomitant]
     Indication: PAIN
     Dosage: 1 G, BID
     Route: 048
     Dates: start: 2009
  7. VANIQA [Interacting]
     Indication: HIRSUTISM
     Dosage: 1 DF, BID
     Route: 003
     Dates: start: 20120528, end: 20121003
  8. VANIQA [Interacting]
     Indication: HIRSUTISM
     Dosage: 1 DF, BID
     Route: 003
     Dates: start: 20121015

REACTIONS (4)
  - Drug interaction [Unknown]
  - Pregnancy on oral contraceptive [Unknown]
  - Abortion spontaneous [Unknown]
  - Maternal exposure during pregnancy [Unknown]
